FAERS Safety Report 22232502 (Version 1)
Quarter: 2023Q2

REPORT INFORMATION
  Report Type: Spontaneous
  Country: US (occurrence: None)
  Receive Date: 20230420
  Receipt Date: 20230420
  Transmission Date: 20230722
  Serious: No
  Sender: FDA-Public Use
  Company Number: US-ROCHE-3116142

PATIENT
  Sex: Male

DRUGS (13)
  1. ESBRIET [Suspect]
     Active Substance: PIRFENIDONE
     Indication: Idiopathic pulmonary fibrosis
     Dosage: TAKE 3 TABLETS THREE TIMES A DAY WITH MEALS
     Route: 048
     Dates: start: 20210204
  2. EZETIMIBE [Concomitant]
     Active Substance: EZETIMIBE
  3. ATENOLOL [Concomitant]
     Active Substance: ATENOLOL
  4. CRESTOR [Concomitant]
     Active Substance: ROSUVASTATIN CALCIUM
  5. EFFIENT [Concomitant]
     Active Substance: PRASUGREL HYDROCHLORIDE
  6. HYDROCHLOROTHIAZIDE [Concomitant]
     Active Substance: HYDROCHLOROTHIAZIDE
  7. LOSARTAN POTASSIUM [Concomitant]
     Active Substance: LOSARTAN POTASSIUM
  8. MOBIC [Concomitant]
     Active Substance: MELOXICAM
  9. TADALAFIL [Concomitant]
     Active Substance: TADALAFIL
  10. CALCIUM [Concomitant]
     Active Substance: CALCIUM
     Dosage: 500-1000 M
  11. COENZYME Q10 [Concomitant]
     Active Substance: DIETARY SUPPLEMENT\UBIDECARENONE
     Dosage: CAPSULE COENZYME Q-1
  12. GLUCOSAMINE [Concomitant]
     Active Substance: GLUCOSAMINE
     Dosage: 500-400
  13. VITAMIN C [Concomitant]
     Active Substance: ASCORBIC ACID

REACTIONS (10)
  - Fatigue [Unknown]
  - Exercise tolerance decreased [Unknown]
  - Dyspnoea exertional [Unknown]
  - Cough [Unknown]
  - Rhinorrhoea [Unknown]
  - Dysphonia [Not Recovered/Not Resolved]
  - Pulmonary function test decreased [Not Recovered/Not Resolved]
  - Pulmonary congestion [Not Recovered/Not Resolved]
  - Dyspnoea [Not Recovered/Not Resolved]
  - Bronchitis [Not Recovered/Not Resolved]
